FAERS Safety Report 6439931-X (Version None)
Quarter: 2009Q4

REPORT INFORMATION
  Report Type: 
  Country: None (occurrence: None)
  Receive Date: 20091113
  Receipt Date: 20091103
  Transmission Date: 20100525
  Serious: Yes (Other)
  Sender: FDA-Public Use
  Company Number: BR-PFIZER INC-2009214993

PATIENT
  Age: 65 Year
  Sex: Male
  Weight: 77 kg

DRUGS (3)
  1. CAVERJECT [Suspect]
     Indication: ERECTILE DYSFUNCTION
     Dosage: 20 UG, AS NEEDED
     Dates: start: 20081101
  2. LOSARTAN POTASSIUM [Concomitant]
     Indication: HYPERTENSION
     Dosage: 50 MG, UNK
  3. ATENOLOL [Concomitant]
     Indication: HYPERTENSION
     Dosage: 25 MG, UNK

REACTIONS (4)
  - ERECTION INCREASED [None]
  - PENILE PAIN [None]
  - PENIS DISORDER [None]
  - URINARY TRACT DISORDER [None]
